FAERS Safety Report 4753801-4 (Version None)
Quarter: 2005Q3

REPORT INFORMATION
  Report Type: 
  Country: None (occurrence: None)
  Receive Date: 20050823
  Receipt Date: 20050629
  Transmission Date: 20060218
  Serious: No
  Sender: FDA-Public Use
  Company Number: 215489

PATIENT
  Age: 57 Year
  Sex: Male
  Weight: 149.7 kg

DRUGS (3)
  1. RAPTIVA [Suspect]
     Indication: PSORIASIS
     Dosage: 0.9ML SINGLE SUBCUTANEOUS
     Route: 058
     Dates: start: 20050531
  2. RAPTIVA [Suspect]
     Dosage: 1.3 ML  1/WEEK SUBCUTANEOUS
     Route: 058
     Dates: start: 20050601
  3. STEROID [Concomitant]

REACTIONS (1)
  - BLOOD BLISTER [None]
